FAERS Safety Report 23985152 (Version 1)
Quarter: 2024Q2

REPORT INFORMATION
  Report Type: Spontaneous
  Country: FR (occurrence: FR)
  Receive Date: 20240618
  Receipt Date: 20240618
  Transmission Date: 20240715
  Serious: Yes (Other)
  Sender: FDA-Public Use
  Company Number: FR-SUN PHARMACEUTICAL INDUSTRIES LTD-2024RR-452085

PATIENT
  Age: 35 Year
  Sex: Male

DRUGS (3)
  1. PAROXETINE [Suspect]
     Active Substance: PAROXETINE
     Indication: Anxiety
     Dosage: 20 MILLIGRAM, DAILY
     Route: 048
     Dates: start: 20230911, end: 20230915
  2. MIRTAZAPINE [Suspect]
     Active Substance: MIRTAZAPINE
     Indication: Anxiety
     Dosage: 15 MG X4/D
     Route: 048
     Dates: start: 202209, end: 20230915
  3. CYAMEMAZINE [Concomitant]
     Active Substance: CYAMEMAZINE
     Indication: Anxiety
     Dosage: 20 GTT DROPS, DAILY
     Route: 048
     Dates: start: 202209

REACTIONS (1)
  - Serotonin syndrome [Recovered/Resolved]

NARRATIVE: CASE EVENT DATE: 20230915
